FAERS Safety Report 24249428 (Version 1)
Quarter: 2024Q3

REPORT INFORMATION
  Report Type: Spontaneous
  Country: US (occurrence: US)
  Receive Date: 20240826
  Receipt Date: 20240826
  Transmission Date: 20241017
  Serious: No
  Sender: SANOFI AVENTIS
  Company Number: US-SA-SAC20240820000061

PATIENT
  Age: 14 Year
  Sex: Male
  Weight: 41.73 kg

DRUGS (5)
  1. DUPIXENT [Suspect]
     Active Substance: DUPILUMAB
     Indication: Eosinophilic oesophagitis
     Dosage: DOSE: 300MG FREQUENCY : EVERY WEEK
     Route: 058
     Dates: start: 202405, end: 20240723
  2. DUPIXENT [Suspect]
     Active Substance: DUPILUMAB
     Dosage: 300 MG
     Route: 058
     Dates: start: 20240730
  3. MELATONIN [Concomitant]
     Active Substance: MELATONIN
  4. VITAMINS NOS [Concomitant]
     Active Substance: VITAMINS
  5. SINGULAIR [Concomitant]
     Active Substance: MONTELUKAST SODIUM

REACTIONS (3)
  - Dysphagia [Not Recovered/Not Resolved]
  - Product dose omission issue [Unknown]
  - Decreased appetite [Not Recovered/Not Resolved]

NARRATIVE: CASE EVENT DATE: 20240101
